APPROVED DRUG PRODUCT: MINOLIRA
Active Ingredient: MINOCYCLINE HYDROCHLORIDE
Strength: EQ 135MG BASE
Dosage Form/Route: TABLET, EXTENDED RELEASE;ORAL
Application: N209269 | Product #002
Applicant: EPI HEALTH LLC
Approved: May 8, 2017 | RLD: No | RS: No | Type: DISCN

PATENTS:
Patent 11103517 | Expires: Apr 7, 2036